FAERS Safety Report 9259824 (Version 3)
Quarter: 2014Q1

REPORT INFORMATION
  Report Type: Spontaneous
  Country: US (occurrence: US)
  Receive Date: 20130429
  Receipt Date: 20140306
  Transmission Date: 20141002
  Serious: No
  Sender: FDA-Public Use
  Company Number: US-BIOGENIDEC-2013BI038115

PATIENT
  Sex: Male

DRUGS (1)
  1. TYSABRI [Suspect]
     Indication: MULTIPLE SCLEROSIS
     Route: 042
     Dates: start: 20121218

REACTIONS (5)
  - Spondylitis [Recovered/Resolved]
  - Gait disturbance [Recovered/Resolved]
  - Spinal disorder [Not Recovered/Not Resolved]
  - General symptom [Not Recovered/Not Resolved]
  - Memory impairment [Not Recovered/Not Resolved]
